FAERS Safety Report 4368448-1 (Version None)
Quarter: 2004Q2

REPORT INFORMATION
  Report Type: 
  Country: None (occurrence: None)
  Receive Date: 20040602
  Receipt Date: 20040227
  Transmission Date: 20050107
  Serious: Yes (Hospitalization, Disabling)
  Sender: FDA-Public Use
  Company Number: US-GLAXOSMITHKLINE-A0500357A

PATIENT
  Age: 19 Year
  Sex: Female

DRUGS (2)
  1. AUGMENTIN [Suspect]
     Indication: INFECTION
     Route: 048
     Dates: start: 20040205
  2. MEDROL [Concomitant]

REACTIONS (2)
  - ANXIETY [None]
  - RASH [None]
